FAERS Safety Report 15547018 (Version 1)
Quarter: 2018Q4

REPORT INFORMATION
  Report Type: Spontaneous
  Country: GB (occurrence: GB)
  Receive Date: 20181024
  Receipt Date: 20181024
  Transmission Date: 20190205
  Serious: Yes (Hospitalization)
  Sender: FDA-Public Use
  Company Number: GB-TEVA-2018-GB-968049

PATIENT
  Age: 82 Year
  Sex: Female

DRUGS (8)
  1. DIGOXIN. [Suspect]
     Active Substance: DIGOXIN
     Dosage: 125 MICROGRAM DAILY; EVERY MORNING
     Route: 048
     Dates: end: 20180913
  2. PARACETAMOL [Concomitant]
     Active Substance: ACETAMINOPHEN
  3. ATORVASTATIN [Concomitant]
     Active Substance: ATORVASTATIN
     Dates: end: 20180919
  4. BISOPROLOL [Suspect]
     Active Substance: BISOPROLOL
     Dosage: 1.15 MILLIGRAM DAILY; EVERY MORNING
     Route: 048
     Dates: end: 20180912
  5. WARFARIN [Concomitant]
     Active Substance: WARFARIN
     Dates: end: 20180919
  6. OMEPRAZOLE. [Concomitant]
     Active Substance: OMEPRAZOLE
     Dates: end: 20180919
  7. FUROSEMIDE. [Concomitant]
     Active Substance: FUROSEMIDE
     Dosage: DOSE REDUCED
  8. ALGESAL [Concomitant]
     Active Substance: DIETHYLAMINE SALICYLATE

REACTIONS (7)
  - Atrioventricular block complete [Unknown]
  - Pulmonary oedema [Unknown]
  - Lower respiratory tract infection [Unknown]
  - Loss of consciousness [Recovered/Resolved]
  - Bradycardia [Recovered/Resolved with Sequelae]
  - Acute kidney injury [Unknown]
  - Hypotension [Unknown]

NARRATIVE: CASE EVENT DATE: 20180912
